FAERS Safety Report 24641637 (Version 1)
Quarter: 2024Q4

REPORT INFORMATION
  Report Type: Spontaneous
  Country: CN (occurrence: CN)
  Receive Date: 20241120
  Receipt Date: 20241120
  Transmission Date: 20250115
  Serious: Yes (Hospitalization, Other)
  Sender: AZURITY PHARMACEUTICALS
  Company Number: CN-AZURITY PHARMACEUTICALS, INC.-AZR202411-001073

PATIENT
  Age: 45 Year
  Sex: Female
  Weight: 62.5 kg

DRUGS (14)
  1. EDARBI [Suspect]
     Active Substance: AZILSARTAN KAMEDOXOMIL
     Indication: Hypertension
     Dosage: 80 MILLIGRAM, QD
     Route: 048
     Dates: start: 20240816
  2. LEVOTHYROXINE SODIUM [Concomitant]
     Active Substance: LEVOTHYROXINE SODIUM
     Indication: Hypothyroidism
     Dosage: UNK
     Route: 065
     Dates: start: 20240815
  3. REMIFENTANIL HYDROCHLORIDE [Concomitant]
     Active Substance: REMIFENTANIL HYDROCHLORIDE
     Indication: Hypothyroidism
     Dosage: UNK
     Route: 065
     Dates: start: 20240924, end: 20240924
  4. REMIFENTANIL HYDROCHLORIDE [Concomitant]
     Active Substance: REMIFENTANIL HYDROCHLORIDE
     Indication: Pain
  5. SUFENTANIL CITRATE [Concomitant]
     Active Substance: SUFENTANIL CITRATE
     Indication: Sedation
     Dosage: UNK
     Route: 065
     Dates: start: 20240924, end: 20240924
  6. SUFENTANIL CITRATE [Concomitant]
     Active Substance: SUFENTANIL CITRATE
     Indication: Analgesic therapy
  7. SUFENTANIL CITRATE [Concomitant]
     Active Substance: SUFENTANIL CITRATE
     Indication: Prophylaxis
  8. TRAMADOL HYDROCHLORIDE [Concomitant]
     Active Substance: TRAMADOL HYDROCHLORIDE
     Indication: Postoperative analgesia
     Dosage: UNK
     Route: 065
     Dates: start: 20240924, end: 20240924
  9. Remimazolam tosilate [Concomitant]
     Indication: Sedation
     Dosage: UNK
     Route: 065
     Dates: start: 20240924, end: 20240924
  10. ETIMICIN SULFATE [Concomitant]
     Active Substance: ETIMICIN SULFATE
     Indication: Infection
     Dosage: UNK
     Route: 065
     Dates: start: 20240924, end: 20240924
  11. KETOROLAC TROMETHAMINE [Concomitant]
     Active Substance: KETOROLAC TROMETHAMINE
     Indication: Postoperative analgesia
     Dosage: UNK
     Route: 065
     Dates: start: 20240924, end: 20240924
  12. SODIUM DEOXYRIBONUCLEOTIDE [Concomitant]
     Indication: Nutritional supplementation
     Dosage: UNK
     Route: 065
     Dates: start: 20240924, end: 20240924
  13. URSODIOL [Concomitant]
     Active Substance: URSODIOL
     Indication: Gastrointestinal disorder
     Dosage: UNK
     Route: 065
     Dates: start: 20240926
  14. URSODIOL [Concomitant]
     Active Substance: URSODIOL
     Indication: Prophylaxis

REACTIONS (1)
  - Cholecystitis [Recovered/Resolved]

NARRATIVE: CASE EVENT DATE: 20240923
